FAERS Safety Report 6358461-7 (Version None)
Quarter: 2009Q3

REPORT INFORMATION
  Report Type: 
  Country: None (occurrence: None)
  Receive Date: 20090916
  Receipt Date: 20080813
  Transmission Date: 20100115
  Serious: No
  Sender: FDA-Public Use
  Company Number: US-AMGEN-KDL301317

PATIENT
  Sex: Female
  Weight: 54.5 kg

DRUGS (6)
  1. NEUPOGEN [Suspect]
     Indication: CHEMOTHERAPY
     Dates: start: 20080807
  2. ARANESP [Concomitant]
     Indication: ANAEMIA OF MALIGNANT DISEASE
     Dates: start: 20080806
  3. UNSPECIFIED MEDICATION [Concomitant]
  4. FLUOROURACIL [Concomitant]
     Dates: start: 20080806
  5. CYCLOPHOSPHAMIDE [Concomitant]
     Dates: start: 20080806
  6. EPIRUBICIN [Concomitant]
     Dates: start: 20080806

REACTIONS (1)
  - TACHYCARDIA [None]
